FAERS Safety Report 18181692 (Version 1)
Quarter: 2020Q3

REPORT INFORMATION
  Report Type: Spontaneous
  Country: US (occurrence: US)
  Receive Date: 20200821
  Receipt Date: 20200821
  Transmission Date: 20201103
  Serious: Yes (Hospitalization, Other)
  Sender: FDA-Public Use
  Company Number: US-ALVOGEN-2020-ALVOGEN-113909

PATIENT
  Age: 64 Year
  Sex: Male

DRUGS (8)
  1. GABAPENTIN. [Suspect]
     Active Substance: GABAPENTIN
     Indication: CRANIOCEREBRAL INJURY
  2. OLANZAPINE. [Suspect]
     Active Substance: OLANZAPINE
     Indication: CRANIOCEREBRAL INJURY
  3. LAMOTRIGINE. [Suspect]
     Active Substance: LAMOTRIGINE
     Indication: CRANIOCEREBRAL INJURY
  4. IMIPRAMINE [Suspect]
     Active Substance: IMIPRAMINE
     Indication: CRANIOCEREBRAL INJURY
  5. MODAFINIL. [Suspect]
     Active Substance: MODAFINIL
     Indication: CRANIOCEREBRAL INJURY
  6. ZOLPIDEM [Suspect]
     Active Substance: ZOLPIDEM TARTRATE
     Indication: CRANIOCEREBRAL INJURY
  7. CLARITHROMYCIN. [Suspect]
     Active Substance: CLARITHROMYCIN
     Indication: CRANIOCEREBRAL INJURY
  8. LEVETIRACETAM. [Suspect]
     Active Substance: LEVETIRACETAM
     Indication: CRANIOCEREBRAL INJURY

REACTIONS (7)
  - Cognitive disorder [Recovering/Resolving]
  - Gait disturbance [Recovering/Resolving]
  - Memory impairment [Recovering/Resolving]
  - Delusion [Recovering/Resolving]
  - Trismus [Recovering/Resolving]
  - Fall [Recovering/Resolving]
  - Muscle rigidity [Recovering/Resolving]
